FAERS Safety Report 8239980-5 (Version None)
Quarter: 2012Q1

REPORT INFORMATION
  Report Type: 
  Country: None (occurrence: None)
  Receive Date: 20120328
  Receipt Date: 20120319
  Transmission Date: 20120608
  Serious: Yes (Hospitalization)
  Sender: FDA-Public Use
  Company Number: DE-JNJFOC-20120309969

PATIENT
  Sex: Male

DRUGS (12)
  1. TIZANIDINE HCL [Suspect]
     Route: 048
  2. TOPAMAX [Suspect]
     Route: 048
     Dates: start: 20120318, end: 20120318
  3. ATORVASTATIN [Suspect]
     Indication: PRODUCT USED FOR UNKNOWN INDICATION
     Route: 048
     Dates: start: 20120318, end: 20120318
  4. TEGRETOL [Suspect]
     Indication: PRODUCT USED FOR UNKNOWN INDICATION
     Route: 048
     Dates: start: 20120318, end: 20120318
  5. TAMSULOSIN HCL [Suspect]
     Route: 048
  6. LIORESAL [Suspect]
     Indication: PRODUCT USED FOR UNKNOWN INDICATION
     Route: 048
     Dates: start: 20120318, end: 20120318
  7. TIZANIDINE HCL [Suspect]
     Indication: PRODUCT USED FOR UNKNOWN INDICATION
     Route: 048
     Dates: start: 20120318, end: 20120318
  8. TAMSULOSIN HCL [Suspect]
     Indication: PRODUCT USED FOR UNKNOWN INDICATION
     Route: 048
     Dates: start: 20120318, end: 20120318
  9. TOPAMAX [Suspect]
     Indication: PRODUCT USED FOR UNKNOWN INDICATION
     Route: 048
  10. LIORESAL [Suspect]
     Route: 048
  11. TEGRETOL [Suspect]
     Route: 048
  12. ATORVASTATIN [Suspect]
     Route: 048

REACTIONS (1)
  - INCORRECT DRUG ADMINISTRATION DURATION [None]
